FAERS Safety Report 9994212 (Version 2)
Quarter: 2014Q1

REPORT INFORMATION
  Report Type: Spontaneous
  Country: DE (occurrence: DE)
  Receive Date: 20140310
  Receipt Date: 20140313
  Transmission Date: 20141002
  Serious: Yes (Death)
  Sender: FDA-Public Use
  Company Number: DE-BAXTER-2014BAX011558

PATIENT
  Sex: Female

DRUGS (2)
  1. EXTRANEAL [Suspect]
     Indication: PERITONEAL DIALYSIS
     Route: 033
     Dates: end: 20140221
  2. PHYSIONEAL 35 GLUCOSE 1,36 % W/V 13,6 MG/ML PERITONEALDIALYSEL?SUNG [Suspect]
     Indication: PERITONEAL DIALYSIS
     Route: 033
     Dates: end: 20140221

REACTIONS (1)
  - Death [Fatal]
